FAERS Safety Report 8225158-8 (Version None)
Quarter: 2012Q1

REPORT INFORMATION
  Report Type: 
  Country: None (occurrence: None)
  Receive Date: 20120321
  Receipt Date: 20120313
  Transmission Date: 20120608
  Serious: Yes (Hospitalization)
  Sender: FDA-Public Use
  Company Number: HK-JNJFOC-20110611873

PATIENT
  Sex: Female
  Weight: 84 kg

DRUGS (2)
  1. ARTANE [Concomitant]
     Indication: MUSCLE RIGIDITY
  2. PALIPERIDONE [Suspect]
     Indication: SCHIZOPHRENIA
     Route: 030
     Dates: start: 20110330

REACTIONS (1)
  - SCHIZOPHRENIA [None]
